FAERS Safety Report 17823996 (Version 1)
Quarter: 2020Q2

REPORT INFORMATION
  Report Type: Spontaneous
  Country: CN (occurrence: CN)
  Receive Date: 20200526
  Receipt Date: 20200526
  Transmission Date: 20200714
  Serious: Yes (Hospitalization, Other)
  Sender: FDA-Public Use
  Company Number: CN-ELI_LILLY_AND_COMPANY-CN202005004716

PATIENT
  Age: 75 Year
  Sex: Female

DRUGS (3)
  1. OLANZAPINE. [Suspect]
     Active Substance: OLANZAPINE
     Indication: PRODUCT USED FOR UNKNOWN INDICATION
     Dosage: 2.5 MG, EACH EVENING
     Route: 065
     Dates: start: 201605, end: 2016
  2. RIVASTIGMINE. [Suspect]
     Active Substance: RIVASTIGMINE
     Indication: PRODUCT USED FOR UNKNOWN INDICATION
     Dosage: 6 MG, DAILY
     Route: 065
     Dates: start: 201605, end: 2016
  3. ALPRAZOLAM. [Concomitant]
     Active Substance: ALPRAZOLAM
     Dosage: 0.4 MG, DAILY
     Route: 065

REACTIONS (6)
  - Liver injury [Recovered/Resolved]
  - Rhabdomyolysis [Recovering/Resolving]
  - Urine ketone body present [Recovered/Resolved]
  - White blood cell count increased [Recovered/Resolved]
  - Dementia Alzheimer^s type [Unknown]
  - Hypertension [Unknown]

NARRATIVE: CASE EVENT DATE: 2016
